FAERS Safety Report 23041553 (Version 2)
Quarter: 2024Q1

REPORT INFORMATION
  Report Type: Spontaneous
  Country: CA (occurrence: CA)
  Receive Date: 20231007
  Receipt Date: 20240127
  Transmission Date: 20240409
  Serious: Yes (Hospitalization, Other)
  Sender: FDA-Public Use
  Company Number: None

PATIENT
  Age: 62 Year
  Sex: Female

DRUGS (14)
  1. CISPLATIN [Suspect]
     Active Substance: CISPLATIN
     Indication: Plasma cell myeloma refractory
     Route: 065
  2. CYCLOPHOSPHAMIDE [Suspect]
     Active Substance: CYCLOPHOSPHAMIDE
     Indication: Plasma cell myeloma refractory
     Route: 065
  3. DOXORUBICIN [Suspect]
     Active Substance: DOXORUBICIN
     Indication: Plasma cell myeloma refractory
     Route: 065
  4. FILGRASTIM [Suspect]
     Active Substance: FILGRASTIM
     Indication: Plasma cell myeloma
  5. ETOPOSIDE [Suspect]
     Active Substance: ETOPOSIDE
     Indication: Plasma cell myeloma refractory
     Route: 065
  6. DEXAMETHASONE [Suspect]
     Active Substance: DEXAMETHASONE
     Indication: Plasma cell myeloma refractory
     Route: 065
  7. REVLIMID [Suspect]
     Active Substance: LENALIDOMIDE
     Indication: Plasma cell myeloma
     Dosage: 10 GRAM, QD
  8. VELCADE [Suspect]
     Active Substance: BORTEZOMIB
     Indication: Plasma cell myeloma
  9. CARFILZOMIB [Suspect]
     Active Substance: CARFILZOMIB
     Indication: Plasma cell myeloma
  10. DEXPANTHENOL [Concomitant]
     Active Substance: DEXPANTHENOL
     Indication: Product used for unknown indication
     Dosage: 1 EVERY 1 WEEKS
     Route: 065
  11. VENETOCLAX [Concomitant]
     Active Substance: VENETOCLAX
     Indication: Product used for unknown indication
     Route: 065
  12. CARFILZOMIB [Concomitant]
     Active Substance: CARFILZOMIB
     Indication: Product used for unknown indication
     Route: 065
  13. POMALIDOMIDE [Concomitant]
     Active Substance: POMALIDOMIDE
  14. REVLIMID [Suspect]
     Active Substance: LENALIDOMIDE
     Indication: Plasma cell myeloma
     Dosage: 10 GRAM, QD

REACTIONS (20)
  - Pyrexia [Unknown]
  - Plasma cells increased [Unknown]
  - Plasma cell myeloma refractory [Unknown]
  - Hepatic steatosis [Unknown]
  - Hepatic enzyme increased [Unknown]
  - Confusional state [Unknown]
  - Product use in unapproved indication [Unknown]
  - Aggression [Recovering/Resolving]
  - Anaemia [Recovering/Resolving]
  - Blood calcium increased [Recovering/Resolving]
  - Blood disorder [Recovering/Resolving]
  - Bone marrow disorder [Recovering/Resolving]
  - Cytopenia [Recovering/Resolving]
  - Disease progression [Recovering/Resolving]
  - Fibrosis [Recovering/Resolving]
  - Gastrointestinal disorder [Recovering/Resolving]
  - Osteolysis [Recovering/Resolving]
  - Plasma cell myeloma recurrent [Recovering/Resolving]
  - Renal failure [Recovering/Resolving]
  - Sepsis [Recovering/Resolving]
